FAERS Safety Report 11653099 (Version 1)
Quarter: 2015Q4

REPORT INFORMATION
  Report Type: Spontaneous
  Country: US (occurrence: US)
  Receive Date: 20151022
  Receipt Date: 20151022
  Transmission Date: 20160304
  Serious: No
  Sender: FDA-Public Use
  Company Number: US-CELGENEUS-USA-2015096016

PATIENT
  Sex: Male

DRUGS (1)
  1. OTEZLA [Suspect]
     Active Substance: APREMILAST
     Indication: PRODUCT USED FOR UNKNOWN INDICATION
     Dosage: 60 MILLIGRAM
     Route: 048
     Dates: start: 20150820, end: 20150901

REACTIONS (4)
  - Condition aggravated [Unknown]
  - Migraine [Unknown]
  - No therapeutic response [Unknown]
  - Insomnia [Unknown]

NARRATIVE: CASE EVENT DATE: 2015
